FAERS Safety Report 7407449-3 (Version None)
Quarter: 2011Q2

REPORT INFORMATION
  Report Type: 
  Country: None (occurrence: None)
  Receive Date: 20110411
  Receipt Date: 20110408
  Transmission Date: 20111010
  Serious: Yes (Hospitalization)
  Sender: FDA-Public Use
  Company Number: AU-BRISTOL-MYERS SQUIBB COMPANY-15540164

PATIENT
  Age: 41 Year
  Sex: Male

DRUGS (11)
  1. PRILOSEC [Concomitant]
     Dates: start: 20110211
  2. DOXEPIN [Concomitant]
     Dates: start: 20110121
  3. PACLITAXEL [Suspect]
     Indication: NEOPLASM
     Dosage: INT ON 07MAR11 408MG
     Route: 042
     Dates: start: 20110203
  4. CARBOPLATIN [Suspect]
     Indication: NEOPLASM
     Dosage: INT ON 07MAR11 1075MG
     Route: 042
     Dates: start: 20110203
  5. FENTANYL [Concomitant]
     Route: 061
     Dates: start: 20110110
  6. OXAZEPAM [Concomitant]
     Route: 048
     Dates: start: 20110207
  7. LORAZEPAM [Concomitant]
     Dates: start: 20110203
  8. COLOXYL [Concomitant]
     Dates: start: 20110110
  9. FENTANYL-100 [Concomitant]
     Dates: start: 20110110
  10. BMS754807 [Suspect]
     Indication: NEOPLASM
     Dosage: INTERRUPTED ON 10MAR11.
     Route: 048
     Dates: start: 20110204
  11. OXYCODONE [Concomitant]
     Dosage: OXYCODONE IR ON 10DEC10-18JAN11 18JAN11-C 17JAN11-C
     Dates: start: 20101218

REACTIONS (3)
  - HYPERGLYCAEMIA [None]
  - NAUSEA [None]
  - VOMITING [None]
